FAERS Safety Report 4424809-3 (Version None)
Quarter: 2004Q3

REPORT INFORMATION
  Report Type: 
  Country: None (occurrence: None)
  Receive Date: 20040809
  Receipt Date: 20040727
  Transmission Date: 20050211
  Serious: Yes (Death)
  Sender: FDA-Public Use
  Company Number: JP-JNJFOC-20040707946

PATIENT
  Age: 71 Year
  Sex: Male

DRUGS (16)
  1. FENTANYL [Suspect]
     Indication: CANCER PAIN
     Dosage: 2.5 MG, 1 IN 72 HOUR, TRANSDERMAL
     Route: 062
     Dates: start: 20040308, end: 20040327
  2. MAGNESIUM OXIDE (MAGNESIUM OXIDE) [Concomitant]
  3. AMLODIPINE BESYLATE [Concomitant]
  4. DOXAZOSIN MESYLATE [Concomitant]
  5. TAMSULOSIN HYDROCHLORIDE (TAMSULOSIN HYDROCHLORIDE) [Concomitant]
  6. METILDIGOXIN (METILDIGOXIN) [Concomitant]
  7. VOGLIBOSE (VOGLIBOSE) [Concomitant]
  8. GLYBURIDE [Concomitant]
  9. FAMOTIDINE (FAOMOTIDINE) [Concomitant]
  10. SIMVASTATIN [Concomitant]
  11. HALOPERIDOL [Concomitant]
  12. AZULENE SULFONATE SODIUM-1-GLUTAMINE (AZULENE) [Concomitant]
  13. LOXOPROFEN SODIUM (LOXOPROFEN SODIUM) [Concomitant]
  14. PACILTAXEL (PACLITAXEL) [Concomitant]
  15. CARHOPLATIN (CARBOPLATIN) [Concomitant]
  16. MORPHINE SULFATE [Concomitant]

REACTIONS (2)
  - LUNG NEOPLASM MALIGNANT [None]
  - MALIGNANT NEOPLASM PROGRESSION [None]
